FAERS Safety Report 7471695-3 (Version None)
Quarter: 2011Q2

REPORT INFORMATION
  Report Type: 
  Country: None (occurrence: None)
  Receive Date: 20110502
  Receipt Date: 20110418
  Transmission Date: 20111010
  Serious: Yes (Other)
  Sender: FDA-Public Use
  Company Number: 11-000426

PATIENT
  Age: 29 Year
  Sex: Female
  Weight: 54.4 kg

DRUGS (3)
  1. MULTIVITAMINS (ASCORBIC ACID, ERGOCALCIFEROL, FOLIC ACID, NICOFINAMIDE [Concomitant]
  2. ESTROSTEP FE [Suspect]
     Indication: ACNE
     Dosage: 20-30-35/1000 UG, QD, ORAL ; 20-30-35/1000 UG, QD, ORAL
     Route: 048
     Dates: start: 20110201, end: 20110408
  3. ESTROSTEP FE [Suspect]
     Indication: ACNE
     Dosage: 20-30-35/1000 UG, QD, ORAL ; 20-30-35/1000 UG, QD, ORAL
     Route: 048
     Dates: start: 20100301, end: 20100401

REACTIONS (6)
  - SKIN DISORDER [None]
  - ACCIDENT [None]
  - EXPIRED DRUG ADMINISTERED [None]
  - DRUG INEFFECTIVE [None]
  - CONVULSION [None]
  - POST-TRAUMATIC PAIN [None]
